FAERS Safety Report 9288064 (Version 3)
Quarter: 2014Q1

REPORT INFORMATION
  Report Type: Spontaneous
  Country: JP (occurrence: JP)
  Receive Date: 20130514
  Receipt Date: 20140129
  Transmission Date: 20141002
  Serious: Yes (Other)
  Sender: FDA-Public Use
  Company Number: JP-JNJFOC-20130313952

PATIENT
  Age: 50 Year
  Sex: Male
  Weight: 69 kg

DRUGS (3)
  1. ITRIZOLE [Suspect]
     Indication: FUNGAL INFECTION
     Route: 048
     Dates: start: 200809
  2. VELCADE [Interacting]
     Indication: PLASMA CELL MYELOMA
     Route: 042
     Dates: start: 200809
  3. DECADRON [Concomitant]
     Indication: PLASMA CELL MYELOMA
     Route: 048
     Dates: start: 200809, end: 2008

REACTIONS (3)
  - Neuropathy peripheral [Recovering/Resolving]
  - Drug interaction [Unknown]
  - Platelet count decreased [Recovered/Resolved]
